FAERS Safety Report 9249913 (Version 2)
Quarter: 2013Q2

REPORT INFORMATION
  Report Type: Spontaneous
  Country: ZA (occurrence: ZA)
  Receive Date: 20130423
  Receipt Date: 20130423
  Transmission Date: 20140414
  Serious: Yes (Hospitalization)
  Sender: FDA-Public Use
  Company Number: ZA-009507513-1304ZAF007838

PATIENT
  Age: 38 Year
  Sex: Male
  Weight: 83.4 kg

DRUGS (6)
  1. JANUMET 50/1000 [Suspect]
     Indication: DIABETES MELLITUS MANAGEMENT
     Dosage: 50/500 MG
     Route: 048
     Dates: start: 20130212, end: 20130212
  2. NOVOMIX 30 [Concomitant]
     Indication: DIABETES MELLITUS
     Dosage: TOTAL DAILY DOSE: 32 U
     Route: 058
     Dates: start: 20130220
  3. GLUCOVANCE [Concomitant]
     Indication: DIABETES MELLITUS
     Dosage: 2; DOSAGE FORM: ORAL
     Route: 048
     Dates: start: 20130220
  4. LANSOR [Concomitant]
     Indication: GASTROOESOPHAGEAL REFLUX DISEASE
     Dosage: 30 MG; DOSAGE FORM: ORAL
     Route: 048
     Dates: start: 20130220
  5. CRESTOR [Concomitant]
     Indication: CORONARY ARTERY DISEASE
     Dosage: 10 MG; DOSAGE FORME: ORAL
     Route: 048
     Dates: start: 2011
  6. ECOTRIN [Concomitant]
     Indication: CORONARY ARTERY DISEASE
     Dosage: 81 MG; DOSAGE FORM: ORAL
     Route: 048
     Dates: start: 2011

REACTIONS (5)
  - Hyperhidrosis [Recovered/Resolved]
  - Chest pain [Recovered/Resolved]
  - Hypersensitivity [Recovered/Resolved]
  - Vomiting [Recovered/Resolved]
  - Inappropriate schedule of drug administration [Unknown]
